FAERS Safety Report 6567342-5 (Version None)
Quarter: 2010Q1

REPORT INFORMATION
  Report Type: 
  Country: None (occurrence: None)
  Receive Date: 20100202
  Receipt Date: 20100122
  Transmission Date: 20100710
  Serious: Yes (Other)
  Sender: FDA-Public Use
  Company Number: PHHY2009IE57809

PATIENT
  Sex: Female

DRUGS (5)
  1. CLOZARIL [Suspect]
     Indication: SCHIZOPHRENIA
     Dosage: UNK
     Dates: start: 20070828
  2. CLOZARIL [Suspect]
     Dosage: UNK
  3. ABILIFY [Concomitant]
     Dosage: 5 OD
     Route: 048
  4. ZINLOVANE [Concomitant]
     Dosage: 7.5 MG, UNK
     Route: 048
  5. ASPIRIN [Concomitant]
     Dosage: 7.5 MG, QD
     Route: 048

REACTIONS (4)
  - COUGH [None]
  - DYSPNOEA [None]
  - LOWER RESPIRATORY TRACT INFECTION [None]
  - MALAISE [None]
